FAERS Safety Report 5631126-2 (Version None)
Quarter: 2008Q1

REPORT INFORMATION
  Report Type: 
  Country: None (occurrence: None)
  Receive Date: 20080219
  Receipt Date: 20080208
  Transmission Date: 20080703
  Serious: Yes (Other)
  Sender: FDA-Public Use
  Company Number: GB-PFIZER INC-2008013086

PATIENT
  Age: 80 Year
  Sex: Female

DRUGS (2)
  1. XALATAN [Suspect]
     Indication: OPEN ANGLE GLAUCOMA
     Route: 047
  2. PAMIDRONATE DISODIUM [Interacting]
     Indication: OSTEOPOROSIS
     Dosage: DAILY DOSE:30MG
     Route: 042

REACTIONS (2)
  - DRUG INTERACTION [None]
  - IRIDOCYCLITIS [None]
